FAERS Safety Report 9916960 (Version 1)
Quarter: 2014Q1

REPORT INFORMATION
  Report Type: Spontaneous
  Country: US (occurrence: US)
  Receive Date: 20140221
  Receipt Date: 20140221
  Transmission Date: 20141002
  Serious: No
  Sender: FDA-Public Use
  Company Number: US-BAYER-2014-021359

PATIENT
  Age: 66 Year
  Sex: Female

DRUGS (2)
  1. GADAVIST [Suspect]
     Indication: NUCLEAR MAGNETIC RESONANCE IMAGING
     Dosage: 8CC, ONCE
     Dates: start: 20140207, end: 20140207
  2. GADAVIST [Suspect]
     Indication: INTERVERTEBRAL DISC PROTRUSION

REACTIONS (3)
  - Cough [Recovered/Resolved]
  - Reflexes abnormal [Recovered/Resolved]
  - Retching [Recovered/Resolved]
